FAERS Safety Report 14584663 (Version 1)
Quarter: 2018Q1

REPORT INFORMATION
  Report Type: Spontaneous
  Country: US (occurrence: US)
  Receive Date: 20180301
  Receipt Date: 20180301
  Transmission Date: 20180509
  Serious: Yes (Hospitalization, Other)
  Sender: FDA-Public Use
  Company Number: US-ALKEM LABORATORIES LIMITED-US-ALKEM-2018-00956

PATIENT
  Age: 23 Year
  Sex: Male

DRUGS (2)
  1. LAMOTRIGINE. [Suspect]
     Active Substance: LAMOTRIGINE
     Indication: PRODUCT USED FOR UNKNOWN INDICATION
     Dosage: 150 MG, QD
     Route: 065
  2. FLUDROCORTISONE [Concomitant]
     Active Substance: FLUDROCORTISONE
     Indication: PRODUCT USED FOR UNKNOWN INDICATION
     Dosage: 0.1 MG, BID
     Route: 065

REACTIONS (6)
  - Lethargy [Recovered/Resolved]
  - Toxicity to various agents [Recovered/Resolved]
  - Myoclonus [Recovered/Resolved]
  - Agitation [Recovered/Resolved]
  - Generalised tonic-clonic seizure [Recovered/Resolved]
  - Overdose [Recovered/Resolved]
